FAERS Safety Report 9200319 (Version 1)
Quarter: 2013Q1

REPORT INFORMATION
  Report Type: Spontaneous
  Country: US (occurrence: US)
  Receive Date: 20130329
  Receipt Date: 20130329
  Transmission Date: 20140127
  Serious: No
  Sender: FDA-Public Use
  Company Number: US-GLAXOSMITHKLINE-A0970054A

PATIENT
  Age: 26 Year
  Sex: Female
  Weight: 77.18 kg

DRUGS (12)
  1. BENLYSTA [Suspect]
     Indication: SYSTEMIC LUPUS ERYTHEMATOSUS
     Route: 042
  2. METOPROLOL [Concomitant]
     Dosage: 50MG PER DAY
  3. COUMADIN [Concomitant]
  4. LUNESTA [Concomitant]
     Indication: INSOMNIA
     Dosage: 2MG PER DAY
  5. PREDNISONE [Concomitant]
  6. FOLIC ACID [Concomitant]
     Dosage: 1MG PER DAY
  7. PLAQUENIL [Concomitant]
     Dosage: 200MG PER DAY
  8. ASMANEX [Concomitant]
     Dosage: 220MCG PER DAY
  9. IPRATROPIUM [Concomitant]
  10. DEPO-PROVERA [Concomitant]
  11. NEXIUM [Concomitant]
     Indication: GASTROOESOPHAGEAL REFLUX DISEASE
     Dosage: 40MG PER DAY
  12. MULTIVITAMIN [Concomitant]

REACTIONS (1)
  - Weight increased [Not Recovered/Not Resolved]
